FAERS Safety Report 6855218-5 (Version None)
Quarter: 2010Q3

REPORT INFORMATION
  Report Type: 
  Country: None (occurrence: None)
  Receive Date: 20100718
  Receipt Date: 20100715
  Transmission Date: 20110219
  Serious: Yes (Other)
  Sender: FDA-Public Use
  Company Number: IT-BRISTOL-MYERS SQUIBB COMPANY-15193352

PATIENT
  Age: 81 Year
  Sex: Female

DRUGS (7)
  1. COUMADIN [Suspect]
     Indication: PROPHYLAXIS
     Dosage: 1 D.F:1 POSOLOGIC UNIT AS NECESSARY
     Route: 048
     Dates: start: 20100630, end: 20100706
  2. GLIBOMET [Suspect]
     Indication: DIABETES MELLITUS
     Dosage: 400MG+5MG FILM COATED ORAL TABS 1D.F:3 POSOLOGIC UNIT/DAY FOR.
     Route: 048
     Dates: start: 20090101, end: 20100706
  3. LASIX [Concomitant]
     Dosage: LASIX 25 MG  1 D.F:2 POSOLOGIC UNITS
  4. ALDACTONE [Concomitant]
     Dosage: CAPS
     Route: 048
  5. TAREG [Concomitant]
     Dosage: TAREG 40 MG FILM COATED ORAL TABS
     Route: 048
  6. PROPAFENONE HCL [Concomitant]
     Dosage: RYTMONORM 150 MG COATED ORAL TABS 1 D.F=3 POSOLOGIC UNITS
     Route: 048
  7. CONGESCOR [Concomitant]

REACTIONS (2)
  - HYPOGLYCAEMIA [None]
  - INTERNATIONAL NORMALISED RATIO INCREASED [None]
